FAERS Safety Report 4445042-5 (Version None)
Quarter: 2004Q3

REPORT INFORMATION
  Report Type: 
  Country: None (occurrence: None)
  Receive Date: 20040903
  Receipt Date: 20040820
  Transmission Date: 20050211
  Serious: Yes (Other)
  Sender: FDA-Public Use
  Company Number: 208680

PATIENT
  Age: 84 Year
  Sex: Male
  Weight: 75 kg

DRUGS (7)
  1. RITUXIMAB (RITUXIMAB) CONC FOR SOLUTION FOR INFUSION [Suspect]
     Indication: CENTRAL NERVOUS SYSTEM LYMPHOMA
     Dosage: 50 MG, INTRATHECAL   : 10 MG, X2,  INTRATHECAL
     Route: 037
     Dates: start: 20040524
  2. LIPITOR [Concomitant]
  3. METOPROLOL XL (METOPROLOL TARTRATE) [Concomitant]
  4. TYLENOL WITH CODEINE (ACETAMINOPHEN, CODEINE PHOSPHATE) [Concomitant]
  5. SEPTRA DS [Concomitant]
  6. SENNA [Concomitant]
  7. COLACE (DOCUSATE SODIUM) [Concomitant]

REACTIONS (4)
  - ARACHNOIDITIS [None]
  - DIPLOPIA [None]
  - HYPERTENSION [None]
  - INFUSION RELATED REACTION [None]
